FAERS Safety Report 5513989-4 (Version None)
Quarter: 2007Q4

REPORT INFORMATION
  Report Type: 
  Country: None (occurrence: None)
  Receive Date: 20071107
  Receipt Date: 20070709
  Transmission Date: 20080405
  Serious: Yes (Hospitalization)
  Sender: FDA-Public Use
  Company Number: 2007RL000309

PATIENT
  Age: 50 Year
  Sex: Male

DRUGS (2)
  1. RYTHMOL SR [Suspect]
     Indication: ATRIAL FIBRILLATION
     Dosage: PO
     Route: 048
     Dates: start: 20051001, end: 20051001
  2. ^A LOT OF OTHER MEDICATIONS^ [Concomitant]

REACTIONS (1)
  - ATRIAL FIBRILLATION [None]
